FAERS Safety Report 8389267-5 (Version None)
Quarter: 2012Q2

REPORT INFORMATION
  Report Type: 
  Country: None (occurrence: None)
  Receive Date: 20120528
  Receipt Date: 20120521
  Transmission Date: 20120825
  Serious: Yes (Other)
  Sender: FDA-Public Use
  Company Number: PHHY2012AU043297

PATIENT
  Sex: Female

DRUGS (3)
  1. CLOZARIL [Suspect]
     Dosage: 25 MG
     Dates: start: 20120323
  2. CLOZARIL [Suspect]
     Dosage: 25 MG
     Dates: end: 20120511
  3. CLOZARIL [Suspect]
     Dosage: 12.5 MG
     Dates: start: 20120424

REACTIONS (10)
  - EOSINOPHILIA [None]
  - CARDIAC DISORDER [None]
  - HYPERTHERMIA [None]
  - WHITE BLOOD CELL COUNT INCREASED [None]
  - HAEMOGLOBIN DECREASED [None]
  - MONOCYTE COUNT INCREASED [None]
  - C-REACTIVE PROTEIN INCREASED [None]
  - CONSTIPATION [None]
  - BLOOD DISORDER [None]
  - NEUTROPHIL COUNT INCREASED [None]
